FAERS Safety Report 4396256-4 (Version None)
Quarter: 2004Q2

REPORT INFORMATION
  Report Type: 
  Country: None (occurrence: None)
  Receive Date: 20040621
  Receipt Date: 20031121
  Transmission Date: 20050107
  Serious: Yes (Death)
  Sender: FDA-Public Use
  Company Number: USA-2003-0010975

PATIENT
  Age: 44 Year
  Sex: Female
  Weight: 54.2 kg

DRUGS (8)
  1. OXYCODONE HCL [Suspect]
  2. LORTAB [Suspect]
  3. MEPROBAMATE [Suspect]
  4. DIAZEPAM [Suspect]
  5. IBUPROFEN [Suspect]
  6. PROPOXYPHENE HCL [Suspect]
  7. SOMA [Suspect]
  8. ACETAMINOPHEN [Suspect]

REACTIONS (2)
  - ACCIDENTAL OVERDOSE [None]
  - MULTIPLE DRUG OVERDOSE [None]
